FAERS Safety Report 21945725 (Version 1)
Quarter: 2023Q1

REPORT INFORMATION
  Report Type: Spontaneous
  Country: US (occurrence: US)
  Receive Date: 20230202
  Receipt Date: 20230202
  Transmission Date: 20230417
  Serious: Yes (Other)
  Sender: FDA-Public Use
  Company Number: US-SANOFI-01468232

PATIENT
  Sex: Female

DRUGS (4)
  1. PLAVIX [Suspect]
     Active Substance: CLOPIDOGREL BISULFATE
     Dosage: UNK
     Dates: start: 202212
  2. ELIQUIS [Concomitant]
     Active Substance: APIXABAN
     Indication: Atrial fibrillation
     Dosage: 2.5MG TWICE A DAY
  3. ASPIRIN [Concomitant]
     Active Substance: ASPIRIN
     Dosage: 325MG
  4. LYRICA [Concomitant]
     Active Substance: PREGABALIN
     Indication: Nerve injury

REACTIONS (2)
  - Haemorrhage [Unknown]
  - Epistaxis [Unknown]
